FAERS Safety Report 4585934-X (Version None)
Quarter: 2005Q1

REPORT INFORMATION
  Report Type: 
  Country: None (occurrence: None)
  Receive Date: 20050214
  Receipt Date: 20050201
  Transmission Date: 20050727
  Serious: Yes (Hospitalization)
  Sender: FDA-Public Use
  Company Number: 2005011518

PATIENT
  Sex: Female

DRUGS (1)
  1. CELEBREX [Suspect]
     Indication: ANTIINFLAMMATORY THERAPY
     Dosage: 400 MG (200 MG, 1 IN 1 D), ORAL
     Route: 048
     Dates: start: 20041219, end: 20041219

REACTIONS (7)
  - COUGH [None]
  - DRUG HYPERSENSITIVITY [None]
  - GENERALISED OEDEMA [None]
  - LARYNGEAL OEDEMA [None]
  - POST PROCEDURAL HAEMORRHAGE [None]
  - VISUAL ACUITY REDUCED [None]
  - WOUND HAEMORRHAGE [None]
